FAERS Safety Report 18459230 (Version 5)
Quarter: 2021Q3

REPORT INFORMATION
  Report Type: Spontaneous
  Country: US (occurrence: US)
  Receive Date: 20201103
  Receipt Date: 20210803
  Transmission Date: 20211014
  Serious: Yes (Death, Life-Threatening, Hospitalization, Other)
  Sender: FDA-Public Use
  Company Number: US-PFIZER INC-2020423744

PATIENT
  Age: 44 Year
  Sex: Female
  Weight: 70.2 kg

DRUGS (5)
  1. CARBOPLATIN. [Suspect]
     Active Substance: CARBOPLATIN
     Indication: CERVIX CARCINOMA STAGE III
     Dosage: 220 MG (1 CYCLICAL)
     Route: 042
     Dates: start: 20191010
  2. CISPLATIN. [Suspect]
     Active Substance: CISPLATIN
     Dosage: 40 MG/M2, CYCLIC (3 CYCLICAL)
     Route: 042
     Dates: start: 20190819
  3. CISPLATIN. [Suspect]
     Active Substance: CISPLATIN
     Dosage: 40 MG/M2, CYCLIC (3 CYCLICAL)
     Route: 042
     Dates: start: 20190826
  4. FLUORODEOXYGLUCOSE 18F [Concomitant]
     Active Substance: FLUDEOXYGLUCOSE F-18
     Dosage: UNK
  5. CISPLATIN. [Suspect]
     Active Substance: CISPLATIN
     Indication: CERVIX CARCINOMA STAGE III
     Dosage: 40 MG/M2, CYCLIC (3 CYCLICAL)
     Route: 042
     Dates: start: 20190812

REACTIONS (1)
  - Hepatitis B reactivation [Fatal]

NARRATIVE: CASE EVENT DATE: 20191021
